FAERS Safety Report 6939917-2 (Version None)
Quarter: 2010Q3

REPORT INFORMATION
  Report Type: 
  Country: None (occurrence: None)
  Receive Date: 20100825
  Receipt Date: 20100814
  Transmission Date: 20110219
  Serious: Yes (Other)
  Sender: FDA-Public Use
  Company Number: US-PFIZER INC-2007005979

PATIENT
  Sex: Female
  Weight: 62.6 kg

DRUGS (21)
  1. CHANTIX [Suspect]
     Indication: SMOKING CESSATION THERAPY
     Dosage: 1 MG, 2X/DAY
     Route: 048
     Dates: start: 20061001
  2. CHANTIX [Suspect]
     Dosage: UNK
     Route: 048
     Dates: start: 20080101
  3. CHANTIX [Suspect]
     Dosage: UNK
     Route: 048
     Dates: start: 20100101, end: 20100101
  4. CHANTIX [Suspect]
     Dosage: UNK
     Route: 048
     Dates: start: 20100801, end: 20100814
  5. CYMBALTA [Concomitant]
  6. PREVACID [Concomitant]
  7. SPIRONOLACTONE [Concomitant]
  8. DETROL LA [Concomitant]
  9. COZAAR [Concomitant]
  10. COREG [Concomitant]
  11. DIAZEPAM [Concomitant]
  12. METOLAZONE [Concomitant]
  13. FOLIC ACID [Concomitant]
  14. MAGNESIUM OXIDE [Concomitant]
  15. DIGITEK [Concomitant]
  16. ZYRTEC [Concomitant]
  17. AMARYL [Concomitant]
     Indication: TYPE 2 DIABETES MELLITUS
  18. ZINCATE [Concomitant]
  19. BUMEX [Concomitant]
  20. ASCORBIC ACID [Concomitant]
  21. ACETAMINOPHEN [Concomitant]
     Dosage: UNK
     Route: 048

REACTIONS (7)
  - BLOOD GLUCOSE INCREASED [None]
  - BLOOD PRESSURE DECREASED [None]
  - DRUG INTERACTION [None]
  - LOSS OF CONSCIOUSNESS [None]
  - NAUSEA [None]
  - SPINAL COLUMN INJURY [None]
  - VOMITING [None]
